FAERS Safety Report 9274525 (Version 3)
Quarter: 2015Q2

REPORT INFORMATION
  Report Type: Report from Study
  Country: JP (occurrence: JP)
  Receive Date: 20130507
  Receipt Date: 20150605
  Transmission Date: 20150821
  Serious: Yes (Death)
  Sender: FDA-Public Use
  Company Number: JP-009507513-1305JPN001247

PATIENT
  Age: 74 Year
  Sex: Female
  Weight: 44 kg

DRUGS (3)
  1. OXYCONTIN [Concomitant]
     Active Substance: OXYCODONE HYDROCHLORIDE
     Indication: METASTASES TO LIVER
     Dosage: 200 MG, QD; DIVIDED DOSE FREQUENCY UNKNOWN
     Route: 048
     Dates: end: 20130712
  2. SANDOSTATIN [Concomitant]
     Active Substance: OCTREOTIDE ACETATE
     Indication: ABDOMINAL DISCOMFORT
     Dosage: 300 MG, QD; DIVIDED DOSE FREQUENCY
     Route: 042
     Dates: start: 20130507, end: 20130806
  3. DIAZOXIDE [Suspect]
     Active Substance: DIAZOXIDE
     Indication: HYPOGLYCAEMIA
     Dosage: 25 MG, IN THE MORNING AND IN THE EVENING
     Route: 048
     Dates: start: 20130508, end: 20130712

REACTIONS (2)
  - Hepatic cancer [Fatal]
  - Oedema [Not Recovered/Not Resolved]

NARRATIVE: CASE EVENT DATE: 2013
